FAERS Safety Report 23196759 (Version 2)
Quarter: 2023Q4

REPORT INFORMATION
  Report Type: Spontaneous
  Country: US (occurrence: None)
  Receive Date: 20231117
  Receipt Date: 20231117
  Transmission Date: 20240110
  Serious: Yes (Other)
  Sender: FDA-Public Use
  Company Number: 2023A257240

PATIENT
  Age: 43 Year
  Sex: Female
  Weight: 123.7 kg

DRUGS (6)
  1. OLAPARIB [Suspect]
     Active Substance: OLAPARIB
     Indication: Neoplasm
     Route: 048
     Dates: start: 20230717
  2. RP-3500 [Suspect]
     Active Substance: RP-3500
     Indication: Neoplasm
     Route: 048
     Dates: start: 20230717
  3. CHOLECALCIFEROL [Concomitant]
     Active Substance: CHOLECALCIFEROL
  4. MENAQUINONE 5 [Concomitant]
     Active Substance: MENAQUINONE 5
  5. OMEGA-3 FATTY ACIDS [Concomitant]
     Active Substance: OMEGA-3 FATTY ACIDS
  6. HERBALS\TURMERIC [Concomitant]
     Active Substance: HERBALS\TURMERIC

REACTIONS (16)
  - Metastases to meninges [Not Recovered/Not Resolved]
  - Dysarthria [Unknown]
  - Aphasia [Unknown]
  - Papilloedema [Unknown]
  - Malaise [Unknown]
  - Dizziness [Unknown]
  - Syncope [Unknown]
  - Confusional state [Unknown]
  - Musculoskeletal stiffness [Unknown]
  - Glaucoma [Unknown]
  - Headache [Unknown]
  - Photophobia [Unknown]
  - Fatigue [Unknown]
  - Balance disorder [Unknown]
  - Neck pain [Unknown]
  - Mental impairment [Unknown]

NARRATIVE: CASE EVENT DATE: 20230821
